FAERS Safety Report 5521782-1 (Version None)
Quarter: 2007Q4

REPORT INFORMATION
  Report Type: 
  Country: None (occurrence: None)
  Receive Date: 20071120
  Receipt Date: 20071114
  Transmission Date: 20080405
  Serious: Yes (Hospitalization)
  Sender: FDA-Public Use
  Company Number: JP-AVENTIS-200713092JP

PATIENT
  Sex: Female

DRUGS (1)
  1. TAXOTERE [Suspect]

REACTIONS (1)
  - CEREBRAL INFARCTION [None]
